FAERS Safety Report 4722472-5 (Version None)
Quarter: 2005Q3

REPORT INFORMATION
  Report Type: 
  Country: None (occurrence: None)
  Receive Date: 20050722
  Receipt Date: 20050504
  Transmission Date: 20060218
  Serious: No
  Sender: FDA-Public Use
  Company Number: US-GLAXOSMITHKLINE-A0557270A

PATIENT
  Age: 73 Year
  Sex: Female

DRUGS (5)
  1. AVANDIA [Suspect]
     Dosage: 2MG PER DAY
     Route: 048
  2. BENICAR [Concomitant]
     Route: 065
  3. CELEXA [Concomitant]
  4. SYNTHROID [Concomitant]
  5. PREDNISONE [Concomitant]

REACTIONS (1)
  - HEADACHE [None]
